FAERS Safety Report 5608078-4 (Version None)
Quarter: 2008Q1

REPORT INFORMATION
  Report Type: 
  Country: None (occurrence: None)
  Receive Date: 20080130
  Receipt Date: 20080125
  Transmission Date: 20080703
  Serious: Yes (Other)
  Sender: FDA-Public Use
  Company Number: GB-ASTRAZENECA-2007GB02480

PATIENT
  Age: 71 Year
  Sex: Female
  Weight: 50 kg

DRUGS (1)
  1. TAMOXIFEN [Suspect]
     Route: 048
     Dates: start: 20020101, end: 20070101

REACTIONS (2)
  - GINGIVAL RECESSION [None]
  - TOOTH LOSS [None]
